FAERS Safety Report 17578376 (Version 1)
Quarter: 2020Q1

REPORT INFORMATION
  Report Type: Report from Study
  Country: US (occurrence: US)
  Receive Date: 20200324
  Receipt Date: 20200324
  Transmission Date: 20200409
  Serious: Yes (Hospitalization)
  Sender: FDA-Public Use
  Company Number: US-BAYER-2020-025125

PATIENT
  Age: 74 Year
  Sex: Male

DRUGS (3)
  1. XOFIGO [Suspect]
     Active Substance: RADIUM RA-223 DICHLORIDE
     Indication: HORMONE-REFRACTORY PROSTATE CANCER
     Dosage: 165.30 ?CI EVERY 28 DAYS
     Dates: start: 20191120, end: 20191120
  2. XOFIGO [Suspect]
     Active Substance: RADIUM RA-223 DICHLORIDE
     Indication: HORMONE-REFRACTORY PROSTATE CANCER
     Dosage: UNK
     Dates: start: 20200115, end: 20200115
  3. XOFIGO [Suspect]
     Active Substance: RADIUM RA-223 DICHLORIDE
     Indication: HORMONE-REFRACTORY PROSTATE CANCER
     Dosage: UNK
     Route: 042
     Dates: start: 20191218, end: 20191218

REACTIONS (5)
  - Febrile neutropenia [None]
  - Bone marrow failure [None]
  - Arthralgia [None]
  - Pancytopenia [None]
  - Musculoskeletal pain [None]

NARRATIVE: CASE EVENT DATE: 20200116
